FAERS Safety Report 21999999 (Version 5)
Quarter: 2023Q2

REPORT INFORMATION
  Report Type: Report from Study
  Country: CO (occurrence: CO)
  Receive Date: 20230216
  Receipt Date: 20230607
  Transmission Date: 20230722
  Serious: Yes (Hospitalization, Other)
  Sender: FDA-Public Use
  Company Number: CO-TAKEDA-2023TUS016703

PATIENT
  Age: 63 Year
  Sex: Female
  Weight: 43 kg

DRUGS (2)
  1. VEDOLIZUMAB [Suspect]
     Active Substance: VEDOLIZUMAB
     Indication: Crohn^s disease
     Dosage: 300 MILLIGRAM
     Route: 042
     Dates: start: 20230116
  2. VEDOLIZUMAB [Suspect]
     Active Substance: VEDOLIZUMAB
     Dosage: 300 MILLIGRAM
     Route: 042
     Dates: start: 20230127, end: 20230210

REACTIONS (8)
  - Cerebral ischaemia [Recovered/Resolved]
  - Pain [Unknown]
  - Headache [Unknown]
  - Abdominal pain [Unknown]
  - Phonophobia [Unknown]
  - General physical health deterioration [Unknown]
  - Drug ineffective [Unknown]
  - Fear [Unknown]

NARRATIVE: CASE EVENT DATE: 20230116
